FAERS Safety Report 9217083 (Version 2)
Quarter: 2013Q3

REPORT INFORMATION
  Report Type: Spontaneous
  Country: US (occurrence: US)
  Receive Date: 20130408
  Receipt Date: 20130823
  Transmission Date: 20140515
  Serious: Yes (Hospitalization)
  Sender: FDA-Public Use
  Company Number: US-BAYER-2013-043531

PATIENT
  Age: 54 Year
  Sex: Female
  Weight: 72.56 kg

DRUGS (5)
  1. YASMIN [Suspect]
     Dosage: UNK
     Dates: start: 2001, end: 2008
  2. OCELLA [Suspect]
     Dosage: UNK
     Dates: start: 2008, end: 20110404
  3. OCELLA [Suspect]
  4. METOPROLOL [Concomitant]
  5. TOPROL [Concomitant]
     Indication: HYPERTENSION
     Dosage: UNK
     Dates: start: 2009

REACTIONS (9)
  - Pulmonary embolism [None]
  - Pain [None]
  - Injury [None]
  - General physical health deterioration [None]
  - Emotional distress [None]
  - Anxiety [None]
  - Anhedonia [None]
  - Pain [None]
  - Anxiety [None]
